FAERS Safety Report 10581667 (Version 1)
Quarter: 2014Q4

REPORT INFORMATION
  Report Type: Spontaneous
  Country: DE (occurrence: DE)
  Receive Date: 20141113
  Receipt Date: 20141113
  Transmission Date: 20150529
  Serious: Yes (Other)
  Sender: FDA-Public Use
  Company Number: DE-009507513-1411DEU000940

PATIENT
  Age: 0 Year
  Sex: Male

DRUGS (4)
  1. REMERGIL [Suspect]
     Active Substance: MIRTAZAPINE
     Indication: DEPRESSION
     Dosage: UNK,0-35.6 GESTATIONAL WEEK
     Route: 064
     Dates: start: 20120929, end: 20130607
  2. CITALOPRAM [Suspect]
     Active Substance: CITALOPRAM HYDROBROMIDE
     Indication: DEPRESSION
     Dosage: UNK,0-35.6 GESTATIONAL WEEK
     Route: 064
     Dates: start: 20120929, end: 20130607
  3. QUETIAPINE FUMARATE. [Suspect]
     Active Substance: QUETIAPINE FUMARATE
     Dosage: UNK,0-35.6 GESTATIONAL WEEK
     Route: 064
     Dates: start: 20120929, end: 20130607
  4. AMITRIPTYLINE HYDROCHLORIDE. [Concomitant]
     Active Substance: AMITRIPTYLINE HYDROCHLORIDE
     Indication: DEPRESSION
     Dosage: UNK,0-9 GESTATIONAL WEEK
     Route: 064
     Dates: start: 201210, end: 201301

REACTIONS (5)
  - Feeding disorder neonatal [Recovered/Resolved]
  - Temperature regulation disorder [Recovered/Resolved]
  - Cerebral cyst [Not Recovered/Not Resolved]
  - Neonatal respiratory distress syndrome [Recovered/Resolved]
  - Agitation neonatal [Recovered/Resolved]

NARRATIVE: CASE EVENT DATE: 20130607
